FAERS Safety Report 16211678 (Version 1)
Quarter: 2019Q2

REPORT INFORMATION
  Report Type: Spontaneous
  Country: GB (occurrence: GB)
  Receive Date: 20190418
  Receipt Date: 20190418
  Transmission Date: 20190711
  Serious: Yes (Other)
  Sender: FDA-Public Use
  Company Number: GB-FERRINGPH-2019FE01908

PATIENT

DRUGS (2)
  1. CASSIA (SENNOSIDES) [Suspect]
     Active Substance: HERBALS\SENNOSIDES
     Indication: BOWEL PREPARATION
     Route: 065
  2. PICOLAX (ANHYDROUS CITRIC ACID\MAGNESIUM OXIDE\SODIUM PICOSULFATE) [Suspect]
     Active Substance: ANHYDROUS CITRIC ACID\MAGNESIUM OXIDE\SODIUM PICOSULFATE
     Indication: BOWEL PREPARATION
     Dosage: ()
     Route: 065

REACTIONS (2)
  - Chills [Unknown]
  - Cold sweat [Unknown]
